FAERS Safety Report 8069648-X (Version None)
Quarter: 2012Q1

REPORT INFORMATION
  Report Type: 
  Country: None (occurrence: None)
  Receive Date: 20120125
  Receipt Date: 20120124
  Transmission Date: 20120608
  Serious: Yes (Other)
  Sender: FDA-Public Use
  Company Number: DE-SANOFI-AVENTIS-2012SA002178

PATIENT
  Age: 60 Year
  Sex: Female

DRUGS (2)
  1. ARAVA [Suspect]
     Route: 065
  2. PLAVIX [Concomitant]
     Route: 065

REACTIONS (3)
  - HAEMORRHAGIC DIATHESIS [None]
  - CILIARY HYPERAEMIA [None]
  - SWELLING [None]
